FAERS Safety Report 6762140-1 (Version None)
Quarter: 2010Q2

REPORT INFORMATION
  Report Type: 
  Country: None (occurrence: None)
  Receive Date: 20100609
  Receipt Date: 20090910
  Transmission Date: 20101027
  Serious: No
  Sender: FDA-Public Use
  Company Number: US-TYCO HEALTHCARE/MALLINCKRODT-T200901703

PATIENT
  Sex: Male

DRUGS (6)
  1. ACETAMINOPHEN AND HYDROCODONE BITARTRATE [Suspect]
     Indication: NEURALGIA
     Dosage: 2 TID OR AS DIRECTED
     Route: 048
     Dates: start: 20090821
  2. ACETAMINOPHEN AND HYDROCODONE BITARTRATE [Suspect]
     Indication: COMPLEX REGIONAL PAIN SYNDROME
  3. HYDROMORPHONE HCL [Concomitant]
     Indication: PAIN
     Dosage: 2 ML, BID
     Route: 030
  4. XANAX [Concomitant]
     Dosage: 2 MG, QID
  5. HUMALOG [Concomitant]
     Indication: DIABETES MELLITUS
     Dosage: UNK
  6. BENAZEPRIL HYDROCHLORIDE [Concomitant]
     Indication: HYPERTENSION
     Dosage: UNK

REACTIONS (13)
  - ABDOMINAL PAIN UPPER [None]
  - DIARRHOEA [None]
  - DRUG INEFFECTIVE [None]
  - HAEMATOCHEZIA [None]
  - HEADACHE [None]
  - MALAISE [None]
  - NAUSEA [None]
  - PAIN [None]
  - PERIPHERAL COLDNESS [None]
  - PRODUCT ODOUR ABNORMAL [None]
  - PRODUCT TASTE ABNORMAL [None]
  - RASH [None]
  - VISION BLURRED [None]
